FAERS Safety Report 6274877-1 (Version None)
Quarter: 2009Q3

REPORT INFORMATION
  Report Type: 
  Country: None (occurrence: None)
  Receive Date: 20090717
  Receipt Date: 20090702
  Transmission Date: 20100115
  Serious: Yes (Other)
  Sender: FDA-Public Use
  Company Number: ADE2009-0721

PATIENT
  Sex: Female

DRUGS (1)
  1. SERTRALINE [Suspect]
     Indication: DEPRESSION
     Dates: start: 19800101, end: 20070101

REACTIONS (5)
  - HAEMOPTYSIS [None]
  - LUNG CYST [None]
  - NIGHT SWEATS [None]
  - ORGANISING PNEUMONIA [None]
  - PLEURITIC PAIN [None]
